FAERS Safety Report 16198017 (Version 1)
Quarter: 2019Q2

REPORT INFORMATION
  Report Type: Spontaneous
  Country: US (occurrence: US)
  Receive Date: 20190414
  Receipt Date: 20190414
  Transmission Date: 20190711
  Serious: Yes (Life-Threatening, Other)
  Sender: FDA-Public Use
  Company Number: None

PATIENT
  Sex: Female
  Weight: 90.72 kg

DRUGS (1)
  1. MIRENA [Suspect]
     Active Substance: LEVONORGESTREL

REACTIONS (20)
  - Memory impairment [None]
  - Hypoaesthesia [None]
  - Skin irritation [None]
  - Vision blurred [None]
  - Panic attack [None]
  - Palpitations [None]
  - Nausea [None]
  - Headache [None]
  - Alopecia [None]
  - Arthralgia [None]
  - Ocular discomfort [None]
  - Depression [None]
  - Insomnia [None]
  - Decreased interest [None]
  - Food aversion [None]
  - Anxiety [None]
  - Depersonalisation/derealisation disorder [None]
  - Suicidal ideation [None]
  - Confusional state [None]
  - Parosmia [None]
